FAERS Safety Report 15827812 (Version 1)
Quarter: 2019Q1

REPORT INFORMATION
  Report Type: Report from Study
  Country: IT (occurrence: IT)
  Receive Date: 20190115
  Receipt Date: 20190115
  Transmission Date: 20190417
  Serious: Yes (Other)
  Sender: FDA-Public Use
  Company Number: IT-MYLANLABS-2019M1002699

PATIENT
  Age: 27 Year
  Sex: Female

DRUGS (3)
  1. GARDENALE                          /00023201/ [Suspect]
     Active Substance: PHENOBARBITAL
     Indication: GENERALISED NON-CONVULSIVE EPILEPSY
     Dosage: 100 MILLIGRAM, QD
     Route: 048
  2. RIVOTRIL [Concomitant]
     Active Substance: CLONAZEPAM
     Dosage: UNK
  3. LEVETIRACETAM. [Suspect]
     Active Substance: LEVETIRACETAM
     Indication: GENERALISED NON-CONVULSIVE EPILEPSY
     Dosage: 3 GRAM, QD
     Route: 048

REACTIONS (2)
  - Dyspnoea [Recovering/Resolving]
  - Seizure [Recovering/Resolving]

NARRATIVE: CASE EVENT DATE: 20180428
